FAERS Safety Report 24052422 (Version 1)
Quarter: 2024Q3

REPORT INFORMATION
  Report Type: Spontaneous
  Country: US (occurrence: US)
  Receive Date: 20240704
  Receipt Date: 20240704
  Transmission Date: 20241016
  Serious: No
  Sender: BAUSCH AND LOMB
  Company Number: US-BAUSCHBL-2024BNL029373

PATIENT
  Sex: Male

DRUGS (1)
  1. XIIDRA [Suspect]
     Active Substance: LIFITEGRAST
     Indication: Product used for unknown indication
     Dosage: WAS ON MEDICATION FOR ABOUT ONE YEAR (JUN 23)
     Route: 065
     Dates: start: 202306

REACTIONS (2)
  - Burning sensation [Unknown]
  - Dysgeusia [Unknown]
